FAERS Safety Report 19895840 (Version 1)
Quarter: 2021Q3

REPORT INFORMATION
  Report Type: Spontaneous
  Country: FR (occurrence: FR)
  Receive Date: 20210929
  Receipt Date: 20210929
  Transmission Date: 20211014
  Serious: Yes (Hospitalization)
  Sender: FDA-Public Use
  Company Number: FR-UCBSA-2021045159

PATIENT
  Age: 43 Year
  Sex: Male
  Weight: 65 kg

DRUGS (1)
  1. KEPPRA [Suspect]
     Active Substance: LEVETIRACETAM
     Indication: STATUS EPILEPTICUS
     Dosage: 2GRAM DAILY
     Route: 042
     Dates: start: 20210906, end: 20210910

REACTIONS (3)
  - Product use in unapproved indication [Unknown]
  - Rhabdomyolysis [Not Recovered/Not Resolved]
  - Product use issue [Unknown]

NARRATIVE: CASE EVENT DATE: 20210906
